FAERS Safety Report 5106928-1 (Version None)
Quarter: 2006Q3

REPORT INFORMATION
  Report Type: 
  Country: None (occurrence: None)
  Receive Date: 20060918
  Receipt Date: 20060911
  Transmission Date: 20061208
  Serious: Yes (Other)
  Sender: FDA-Public Use
  Company Number: US-BOEHRINGER INGELHEIM PHARMACEUTICALS, INC.-2006-DE-04869GD

PATIENT
  Sex: Male

DRUGS (5)
  1. PREDNISONE [Suspect]
     Indication: CROHN'S DISEASE
     Route: 048
  2. BUDESONIDE [Suspect]
     Indication: CROHN'S DISEASE
     Route: 048
  3. AMLODIPINE [Concomitant]
  4. ROSIGLITAZONE [Concomitant]
     Indication: DIABETES MELLITUS
  5. HYDROCHLOROTHIAZIDE [Concomitant]

REACTIONS (15)
  - ACTIVITIES OF DAILY LIVING IMPAIRED [None]
  - APATHY [None]
  - APHASIA [None]
  - CROHN'S DISEASE [None]
  - CSF PROTEIN INCREASED [None]
  - DEMENTIA [None]
  - DISEASE RECURRENCE [None]
  - FALL [None]
  - GAIT DISTURBANCE [None]
  - HYPERTENSION [None]
  - IMPAIRED DRIVING ABILITY [None]
  - OEDEMA [None]
  - PARKINSONISM [None]
  - SPEECH DISORDER [None]
  - WEIGHT INCREASED [None]
